FAERS Safety Report 14928018 (Version 1)
Quarter: 2018Q2

REPORT INFORMATION
  Report Type: Spontaneous
  Country: US (occurrence: US)
  Receive Date: 20180504
  Receipt Date: 20180504
  Transmission Date: 20180711
  Serious: No
  Sender: FDA-Public Use
  Company Number: None

PATIENT
  Age: 38 Year
  Sex: Female
  Weight: 109.35 kg

DRUGS (3)
  1. TOPICAL STEROID [Concomitant]
  2. LUMIGAN [Suspect]
     Active Substance: BIMATOPROST
     Indication: GLAUCOMA
     Dosage: ?          QUANTITY:1 DROP(S);?
     Route: 047
     Dates: start: 20180503, end: 20180503
  3. ANTIFUNGAL CREME [Concomitant]

REACTIONS (4)
  - Dry eye [None]
  - Eye irritation [None]
  - Pain [None]
  - Ocular hyperaemia [None]

NARRATIVE: CASE EVENT DATE: 20180503
